FAERS Safety Report 23826324 (Version 1)
Quarter: 2024Q2

REPORT INFORMATION
  Report Type: Spontaneous
  Country: US (occurrence: None)
  Receive Date: 20240507
  Receipt Date: 20240507
  Transmission Date: 20240716
  Serious: No
  Sender: FDA-Public Use
  Company Number: 2024A066158

PATIENT
  Age: 76 Year
  Sex: Female

DRUGS (1)
  1. BYDUREON BCISE [Suspect]
     Active Substance: EXENATIDE
     Dates: start: 20240125, end: 20240219

REACTIONS (3)
  - Injection site mass [Unknown]
  - Device defective [Unknown]
  - Device use issue [Unknown]

NARRATIVE: CASE EVENT DATE: 20240201
